FAERS Safety Report 10774699 (Version 1)
Quarter: 2015Q1

REPORT INFORMATION
  Report Type: Spontaneous
  Country: US (occurrence: None)
  Receive Date: 20150206
  Receipt Date: 20150206
  Transmission Date: 20150721
  Serious: No
  Sender: FDA-Public Use
  Company Number: HYP201310-000063

PATIENT
  Age: 10 Year
  Sex: Male

DRUGS (3)
  1. RAVICTI [Suspect]
     Active Substance: GLYCEROL PHENYLBUTYRATE
     Indication: UREA CYCLE ENZYME DEFICIENCY
     Route: 048
     Dates: start: 20130924
  2. CITRULLINE [Concomitant]
     Active Substance: CITRULLINE
  3. CARNITINE [Concomitant]
     Active Substance: CARNITINE

REACTIONS (3)
  - Nausea [None]
  - Palpitations [None]
  - Headache [None]

NARRATIVE: CASE EVENT DATE: 20131001
